FAERS Safety Report 8058888-1 (Version None)
Quarter: 2012Q1

REPORT INFORMATION
  Report Type: 
  Country: None (occurrence: None)
  Receive Date: 20120120
  Receipt Date: 20111110
  Transmission Date: 20120608
  Serious: No
  Sender: FDA-Public Use
  Company Number: US-BRISTOL-MYERS SQUIBB COMPANY-16167629

PATIENT
  Age: 76 Year
  Sex: Male
  Weight: 146 kg

DRUGS (1)
  1. YERVOY [Suspect]
     Indication: MALIGNANT MELANOMA
     Dosage: 1 DF = 400MG AT 2.7 MG/KG 2ND TREATMENT
     Route: 042
     Dates: start: 20110923

REACTIONS (2)
  - MEDICATION ERROR [None]
  - HYPERHIDROSIS [None]
